FAERS Safety Report 6079425-7 (Version None)
Quarter: 2009Q1

REPORT INFORMATION
  Report Type: 
  Country: None (occurrence: None)
  Receive Date: 20090216
  Receipt Date: 20090205
  Transmission Date: 20090719
  Serious: Yes (Hospitalization)
  Sender: FDA-Public Use
  Company Number: DE-AMGEN-UK321262

PATIENT
  Sex: Female

DRUGS (6)
  1. PANITUMUMAB [Suspect]
     Indication: COLORECTAL CANCER
     Route: 042
     Dates: start: 20080429, end: 20080429
  2. PANITUMUMAB [Suspect]
     Route: 042
     Dates: start: 20081126, end: 20081126
  3. PANITUMUMAB [Suspect]
     Route: 042
     Dates: start: 20081229
  4. FLUOROURACIL [Concomitant]
  5. IRINOTECAN HCL [Concomitant]
  6. LEUCOVORIN CALCIUM [Concomitant]

REACTIONS (2)
  - PULMONARY EMBOLISM [None]
  - THROMBOSIS [None]
